FAERS Safety Report 10058093 (Version 2)
Quarter: 2014Q2

REPORT INFORMATION
  Report Type: Spontaneous
  Country: US (occurrence: US)
  Receive Date: 20140404
  Receipt Date: 20140514
  Transmission Date: 20141212
  Serious: No
  Sender: FDA-Public Use
  Company Number: US-PFIZER INC-2014093897

PATIENT
  Age: 63 Year
  Sex: Female
  Weight: 95.2 kg

DRUGS (1)
  1. AMLODIPINE BESILATE [Suspect]
     Indication: HYPERTENSION
     Dosage: 10 MG, DAILY
     Dates: end: 2014

REACTIONS (2)
  - Headache [Not Recovered/Not Resolved]
  - Malaise [Unknown]
